FAERS Safety Report 5571960-0 (Version None)
Quarter: 2007Q4

REPORT INFORMATION
  Report Type: 
  Country: None (occurrence: None)
  Receive Date: 20071221
  Receipt Date: 20071210
  Transmission Date: 20080405
  Serious: Yes (Other)
  Sender: FDA-Public Use
  Company Number: US-GENENTECH-249800

PATIENT
  Sex: Female
  Weight: 79.55 kg

DRUGS (1)
  1. EFALIZUMAB [Suspect]
     Indication: PSORIASIS
     Dosage: 1 MG, UNK
     Dates: start: 20041221

REACTIONS (1)
  - DEEP VEIN THROMBOSIS [None]
